FAERS Safety Report 7478652-1 (Version None)
Quarter: 2011Q2

REPORT INFORMATION
  Report Type: 
  Country: None (occurrence: None)
  Receive Date: 20110513
  Receipt Date: 20110405
  Transmission Date: 20111010
  Serious: Yes (Life-Threatening)
  Sender: FDA-Public Use
  Company Number: B0710950A

PATIENT
  Age: 27 Year
  Sex: Male

DRUGS (1)
  1. NICOTINE [Suspect]
     Indication: DRUG WITHDRAWAL MAINTENANCE THERAPY
     Route: 062
     Dates: start: 20110401

REACTIONS (3)
  - PAIN IN EXTREMITY [None]
  - CHEST DISCOMFORT [None]
  - FATIGUE [None]
